FAERS Safety Report 6204148-0 (Version None)
Quarter: 2009Q2

REPORT INFORMATION
  Report Type: 
  Country: None (occurrence: None)
  Receive Date: 20090518
  Receipt Date: 20090204
  Transmission Date: 20091009
  Serious: No
  Sender: FDA-Public Use
  Company Number: WAES 0902USA00559

PATIENT
  Sex: Male

DRUGS (2)
  1. JANUVIA [Suspect]
     Dosage: PO
     Route: 048
     Dates: start: 20070701
  2. GLYBURIDE [Concomitant]

REACTIONS (2)
  - ACNE [None]
  - RASH GENERALISED [None]
